FAERS Safety Report 9216445 (Version 1)
Quarter: 2013Q2

REPORT INFORMATION
  Report Type: Spontaneous
  Country: BR (occurrence: BR)
  Receive Date: 20130408
  Receipt Date: 20130408
  Transmission Date: 20140414
  Serious: Yes (Death, Hospitalization)
  Sender: FDA-Public Use
  Company Number: BR-ELI_LILLY_AND_COMPANY-BR201303009362

PATIENT
  Age: 80 Year
  Sex: Male
  Weight: 75 kg

DRUGS (4)
  1. CYMBALTA [Suspect]
     Indication: DEPRESSION
     Dosage: 60 MG, UNK
     Route: 048
  2. GALVUS [Concomitant]
     Indication: LUNG DISORDER
     Dosage: UNK, UNKNOWN
     Route: 065
  3. DEPAKENE [Concomitant]
     Indication: DIABETES MELLITUS
     Dosage: UNK, UNKNOWN
     Route: 065
  4. PROLOPA [Concomitant]
     Indication: LUNG DISORDER
     Dosage: UNK, UNKNOWN
     Route: 065

REACTIONS (13)
  - Multi-organ disorder [Fatal]
  - Pulmonary sepsis [Fatal]
  - Chronic obstructive pulmonary disease [Fatal]
  - Type 2 diabetes mellitus [Fatal]
  - Cerebral ischaemia [Unknown]
  - Pneumonia [Unknown]
  - Respiratory disorder [Unknown]
  - Wrong technique in drug usage process [Unknown]
  - Speech disorder [Unknown]
  - Mental disorder [Unknown]
  - Dysphagia [Unknown]
  - Agitation [Unknown]
  - Drug withdrawal syndrome [Recovered/Resolved]
